FAERS Safety Report 12443183 (Version 1)
Quarter: 2016Q2

REPORT INFORMATION
  Report Type: Spontaneous
  Country: FR (occurrence: FR)
  Receive Date: 20160607
  Receipt Date: 20160607
  Transmission Date: 20160815
  Serious: Yes (Other)
  Sender: FDA-Public Use
  Company Number: FR-PFIZER INC-2016284454

PATIENT
  Age: 67 Year
  Sex: Female

DRUGS (1)
  1. LYRICA [Suspect]
     Active Substance: PREGABALIN
     Indication: PAIN
     Dosage: 300 MG, 2X/DAY

REACTIONS (6)
  - Dysgraphia [Unknown]
  - Pain [Unknown]
  - Deafness bilateral [Unknown]
  - Antibody test abnormal [Unknown]
  - Condition aggravated [Unknown]
  - Blindness [Unknown]
